FAERS Safety Report 23182884 (Version 1)
Quarter: 2023Q4

REPORT INFORMATION
  Report Type: Spontaneous
  Country: US (occurrence: US)
  Receive Date: 20231114
  Receipt Date: 20231114
  Transmission Date: 20240109
  Serious: No
  Sender: FDA-Public Use
  Company Number: US-SA-SAC20231108000186

PATIENT
  Age: 47 Year
  Sex: Female
  Weight: 68.03 kg

DRUGS (16)
  1. DUPIXENT [Suspect]
     Active Substance: DUPILUMAB
     Indication: Dermatitis atopic
     Dosage: 300 MG, QOW
     Route: 058
     Dates: start: 20190823
  2. FLAXSEED [Concomitant]
     Active Substance: FLAX SEED
  3. CLOBETASOL [Concomitant]
     Active Substance: CLOBETASOL
  4. ESTRADIOL [Concomitant]
     Active Substance: ESTRADIOL
     Dosage: UNK, QW
  5. PROGESTERONE [Concomitant]
     Active Substance: PROGESTERONE
  6. VITAMIN B12 [Concomitant]
     Active Substance: CYANOCOBALAMIN
  7. CALCIUM\CHOLECALCIFEROL [Concomitant]
     Active Substance: CALCIUM\CHOLECALCIFEROL
  8. HERBALS\TURMERIC [Concomitant]
     Active Substance: HERBALS\TURMERIC
  9. IMITREX [Concomitant]
     Active Substance: SUMATRIPTAN SUCCINATE
  10. ALEVE [Concomitant]
     Active Substance: NAPROXEN SODIUM
  11. EXCEDRIN EXTRA STRENGTH [Concomitant]
     Active Substance: ACETAMINOPHEN\ASPIRIN\CAFFEINE
  12. TYLENOL [Concomitant]
     Active Substance: ACETAMINOPHEN
  13. VITAMIN D NOS [Concomitant]
     Active Substance: VITAMIN D NOS
  14. CLARITIN-D NOS [Concomitant]
     Active Substance: LORATADINE\PSEUDOEPHEDRINE SULFATE
     Dosage: 12 HOUR
  15. NASONEX [Concomitant]
     Active Substance: MOMETASONE FUROATE
  16. ALLEGRA D-12 HOUR [Concomitant]
     Active Substance: FEXOFENADINE HYDROCHLORIDE\PSEUDOEPHEDRINE HYDROCHLORIDE
     Dosage: 12 HOUR

REACTIONS (1)
  - Dermatitis atopic [Recovered/Resolved]

NARRATIVE: CASE EVENT DATE: 20231015
